FAERS Safety Report 24741002 (Version 2)
Quarter: 2025Q2

REPORT INFORMATION
  Report Type: Report from Study
  Country: US (occurrence: US)
  Receive Date: 20241217
  Receipt Date: 20250410
  Transmission Date: 20250716
  Serious: Yes (Hospitalization)
  Sender: JOHNSON AND JOHNSON
  Company Number: US-JNJFOC-20241217040

PATIENT
  Sex: Female

DRUGS (11)
  1. SPRAVATO [Suspect]
     Active Substance: ESKETAMINE
     Indication: Depression
     Route: 045
     Dates: start: 20210112, end: 20241209
  2. SPRAVATO [Suspect]
     Active Substance: ESKETAMINE
     Route: 045
     Dates: start: 20210105, end: 20210107
  3. LEVOTHYROXINE [Concomitant]
     Active Substance: LEVOTHYROXINE
     Indication: Hypothyroidism
  4. ADDERALL [Concomitant]
     Active Substance: AMPHETAMINE ASPARTATE\AMPHETAMINE SULFATE\DEXTROAMPHETAMINE SACCHARATE\DEXTROAMPHETAMINE SULFATE
     Indication: Depression
  5. PROVIGIL [Concomitant]
     Active Substance: MODAFINIL
     Indication: Depression
  6. METOPROLOL [Concomitant]
     Active Substance: METOPROLOL
     Indication: Tachycardia
  7. CHOLECALCIFEROL [Concomitant]
     Active Substance: CHOLECALCIFEROL
     Indication: Depression
  8. FISH OIL [Concomitant]
     Active Substance: FISH OIL
     Indication: Prophylaxis
  9. METHYL FOLATE [CALCIUM LEVOMEFOLATE] [Concomitant]
     Indication: Depression
  10. COBAMAMIDE [Concomitant]
     Active Substance: COBAMAMIDE
     Indication: Depression
  11. WELLBUTRIN XL [Concomitant]
     Active Substance: BUPROPION HYDROCHLORIDE
     Indication: Depression

REACTIONS (7)
  - Hospitalisation [Unknown]
  - Vision blurred [Unknown]
  - Hypoaesthesia oral [Unknown]
  - Somnolence [Unknown]
  - Speech disorder [Unknown]
  - Burning sensation [Unknown]
  - Dysgeusia [Unknown]
